FAERS Safety Report 21672211 (Version 1)
Quarter: 2022Q4

REPORT INFORMATION
  Report Type: Spontaneous
  Country: ES (occurrence: ES)
  Receive Date: 20221202
  Receipt Date: 20221202
  Transmission Date: 20230113
  Serious: Yes (Life-Threatening, Hospitalization, Other)
  Sender: FDA-Public Use
  Company Number: ES-AEMPS-1291664

PATIENT
  Age: 18 Day
  Sex: Female

DRUGS (1)
  1. AMIODARONE [Suspect]
     Active Substance: AMIODARONE
     Indication: Supraventricular tachyarrhythmia
     Dosage: 36 MILLIGRAM/KILOGRAM
     Route: 042
     Dates: start: 20221028, end: 20221028

REACTIONS (4)
  - Condition aggravated [Recovering/Resolving]
  - Pulseless electrical activity [Recovering/Resolving]
  - Supraventricular tachyarrhythmia [Recovering/Resolving]
  - Cardiac arrest [Recovering/Resolving]

NARRATIVE: CASE EVENT DATE: 20221028
